FAERS Safety Report 5281024-1 (Version None)
Quarter: 2007Q1

REPORT INFORMATION
  Report Type: 
  Country: None (occurrence: None)
  Receive Date: 20061229
  Receipt Date: 20060815
  Transmission Date: 20070707
  Serious: Yes (Other)
  Sender: FDA-Public Use
  Company Number: 2006UW16201

PATIENT
  Age: 59 Year
  Sex: Female
  Weight: 68.038 kg

DRUGS (6)
  1. CRESTOR [Suspect]
     Indication: BLOOD CHOLESTEROL INCREASED
     Dosage: 20 MG PO
     Route: 048
  2. SEROQUEL [Concomitant]
  3. PROZAC [Concomitant]
  4. CLONOPIN [Concomitant]
  5. ASPIRIN [Concomitant]
  6. THYROID TAB [Concomitant]

REACTIONS (3)
  - MOBILITY DECREASED [None]
  - MYALGIA [None]
  - NEUROPATHY PERIPHERAL [None]
